FAERS Safety Report 8717198 (Version 2)
Quarter: 2012Q4

REPORT INFORMATION
  Report Type: 
  Country: BO (occurrence: BO)
  Receive Date: 20120810
  Receipt Date: 20120906
  Transmission Date: 20130627
  Serious: Yes (Death, Hospitalization, Other)
  Sender: FDA-Public Use
  Company Number: PHHY2012BO056719

PATIENT
  Sex: Male

DRUGS (5)
  1. GLIVEC [Suspect]
     Indication: CHRONIC MYELOID LEUKAEMIA
     Dosage: 400 mg, daily
     Route: 048
     Dates: start: 201003
  2. GLIVEC [Suspect]
     Dosage: 800 mg, daily
  3. GLIVEC [Suspect]
     Dosage: UNK UKN, UNK
  4. HYDROXYUREA [Concomitant]
     Dosage: 3mg daily
  5. INTERFERON [Concomitant]

REACTIONS (5)
  - Acute myocardial infarction [Fatal]
  - Tumour lysis syndrome [Unknown]
  - Leukocytosis [Recovering/Resolving]
  - Drug resistance [Unknown]
  - Treatment noncompliance [None]
